FAERS Safety Report 5072243-8 (Version None)
Quarter: 2006Q3

REPORT INFORMATION
  Report Type: 
  Country: None (occurrence: None)
  Receive Date: 20060710
  Receipt Date: 20050622
  Transmission Date: 20061208
  Serious: Yes (Hospitalization)
  Sender: FDA-Public Use
  Company Number: PHEH2005US07097

PATIENT
  Age: 76 Year
  Sex: Male

DRUGS (6)
  1. GLEEVEC [Suspect]
     Indication: MYELODYSPLASTIC SYNDROME
     Dosage: 400 MG, QD, ORAL
     Route: 048
     Dates: start: 20040501, end: 20050623
  2. SYNTHROID [Concomitant]
  3. PERCOCET [Concomitant]
  4. CENTRUM SILVER (ASCORBIC ACID, CALCIUM, MINERALS NOS, RETINOL, TOCOPHE [Concomitant]
  5. LOMOTIL [Concomitant]
  6. PROCRIT [Concomitant]

REACTIONS (7)
  - ATRIAL FIBRILLATION [None]
  - CARDIAC FAILURE [None]
  - CARDIAC VALVE DISEASE [None]
  - CHEST X-RAY ABNORMAL [None]
  - EJECTION FRACTION DECREASED [None]
  - INFLAMMATION [None]
  - SWELLING [None]
